FAERS Safety Report 4458619-8 (Version None)
Quarter: 2004Q3

REPORT INFORMATION
  Report Type: 
  Country: None (occurrence: None)
  Receive Date: 20040917
  Receipt Date: 20030724
  Transmission Date: 20050211
  Serious: Yes (Other)
  Sender: FDA-Public Use
  Company Number: US-JNJFOC-20030706459

PATIENT
  Age: 46 Year
  Sex: Male
  Weight: 79.3795 kg

DRUGS (3)
  1. TOPAMAX [Suspect]
     Indication: NEUROPATHY
     Dosage: 400 MG, 2 IN 1 DAY, ORAL
     Route: 048
  2. NEURONTIN [Concomitant]
  3. METHADONE HCL [Concomitant]

REACTIONS (2)
  - ANHIDROSIS [None]
  - WEIGHT DECREASED [None]
